FAERS Safety Report 7629699-3 (Version None)
Quarter: 2011Q3

REPORT INFORMATION
  Report Type: 
  Country: None (occurrence: None)
  Receive Date: 20110722
  Receipt Date: 20110707
  Transmission Date: 20111222
  Serious: Yes (Other)
  Sender: FDA-Public Use
  Company Number: GB-WATSON-2011-10775

PATIENT
  Age: 29 Year
  Sex: Male

DRUGS (2)
  1. ALBUTEROL [Suspect]
     Indication: ASTHMA
     Dosage: UNK
     Route: 045
  2. SERETIDE [Suspect]
     Indication: ASTHMA
     Dosage: UNK
     Route: 045

REACTIONS (2)
  - ASTHMA [None]
  - DRUG INEFFECTIVE [None]
